FAERS Safety Report 8048320-6 (Version None)
Quarter: 2012Q1

REPORT INFORMATION
  Report Type: 
  Country: None (occurrence: None)
  Receive Date: 20120117
  Receipt Date: 20120104
  Transmission Date: 20120608
  Serious: Yes (Other)
  Sender: FDA-Public Use
  Company Number: US-PFIZER INC-2012002725

PATIENT
  Sex: Male
  Weight: 120.18 kg

DRUGS (2)
  1. LYRICA [Suspect]
     Indication: NEURALGIA
     Dosage: 50 MG, 2X/DAY
     Route: 048
     Dates: start: 20110101, end: 20110101
  2. LYRICA [Suspect]
     Indication: NEUROPATHY PERIPHERAL
     Dosage: 50 MG, 2X/DAY
     Route: 048
     Dates: start: 20100101, end: 20100101

REACTIONS (4)
  - LIP SWELLING [None]
  - DYSPNOEA [None]
  - THROAT TIGHTNESS [None]
  - SWOLLEN TONGUE [None]
